FAERS Safety Report 6543575-9 (Version None)
Quarter: 2010Q1

REPORT INFORMATION
  Report Type: 
  Country: None (occurrence: None)
  Receive Date: 20100120
  Receipt Date: 20100119
  Transmission Date: 20100710
  Serious: Yes (Hospitalization)
  Sender: FDA-Public Use
  Company Number: FR-BRISTOL-MYERS SQUIBB COMPANY-14937445

PATIENT
  Age: 38 Year
  Sex: Female

DRUGS (6)
  1. ABILIFY [Suspect]
     Indication: BIPOLAR I DISORDER
     Dates: start: 20090201
  2. NOZINAN [Suspect]
     Indication: BIPOLAR I DISORDER
     Route: 048
     Dates: start: 20090201
  3. LEPONEX [Suspect]
     Indication: BIPOLAR I DISORDER
     Route: 048
     Dates: start: 20070214
  4. CYMBALTA [Suspect]
     Indication: BIPOLAR I DISORDER
     Route: 048
     Dates: start: 20090201
  5. CLONAZEPAM [Suspect]
     Indication: BIPOLAR I DISORDER
     Route: 048
  6. ATARAX [Suspect]
     Indication: BIPOLAR I DISORDER
     Route: 048

REACTIONS (3)
  - EPILEPSY [None]
  - FALL [None]
  - MULTIPLE FRACTURES [None]
